FAERS Safety Report 10016734 (Version 2)
Quarter: 2014Q2

REPORT INFORMATION
  Report Type: Spontaneous
  Country: JP (occurrence: JP)
  Receive Date: 20140318
  Receipt Date: 20140516
  Transmission Date: 20141212
  Serious: Yes (Other)
  Sender: FDA-Public Use
  Company Number: PHHY2014JP031246

PATIENT
  Age: 75 Year
  Sex: Female
  Weight: 66 kg

DRUGS (4)
  1. NEORAL [Suspect]
     Indication: PSORIASIS
     Dosage: 100 MG, DAILY
     Route: 048
     Dates: start: 20120727, end: 20121003
  2. NEORAL [Suspect]
     Dosage: 100 MG, DAILY
     Route: 048
     Dates: start: 20130719, end: 20130823
  3. SAIKOKEISHITO [Suspect]
     Indication: PSORIASIS
     Dosage: 3 DF, DAILY
     Route: 048
     Dates: start: 20090327
  4. HACHIMIJIOGAN [Suspect]
     Indication: PSORIASIS
     Dosage: 3 DF, DAILY
     Route: 048
     Dates: start: 20090327

REACTIONS (6)
  - Hepatic function abnormal [Recovered/Resolved]
  - Abdominal discomfort [Unknown]
  - Decreased appetite [Unknown]
  - Aspartate aminotransferase increased [None]
  - Alanine aminotransferase increased [None]
  - Blood lactate dehydrogenase increased [None]
